FAERS Safety Report 5734690-8 (Version None)
Quarter: 2008Q2

REPORT INFORMATION
  Report Type: 
  Country: None (occurrence: None)
  Receive Date: 20080512
  Receipt Date: 20080508
  Transmission Date: 20081010
  Serious: Yes (Hospitalization)
  Sender: FDA-Public Use
  Company Number: A0717530A

PATIENT
  Sex: Female
  Weight: 112 kg

DRUGS (1)
  1. ALLI [Suspect]

REACTIONS (17)
  - ABDOMINAL DISTENSION [None]
  - ABDOMINAL PAIN [None]
  - ABDOMINAL PAIN UPPER [None]
  - ASTHENIA [None]
  - CHOLECYSTECTOMY [None]
  - DRUG INEFFECTIVE [None]
  - FEELING ABNORMAL [None]
  - GAIT DISTURBANCE [None]
  - GASTROINTESTINAL DISORDER [None]
  - MOBILITY DECREASED [None]
  - MULTIPLE ALLERGIES [None]
  - NEPHROLITHIASIS [None]
  - PAIN [None]
  - POOR QUALITY SLEEP [None]
  - PREMENSTRUAL SYNDROME [None]
  - RENAL PAIN [None]
  - STRESS [None]
